FAERS Safety Report 23760142 (Version 2)
Quarter: 2024Q2

REPORT INFORMATION
  Report Type: Other
  Country: PL (occurrence: PL)
  Receive Date: 20240419
  Receipt Date: 20240502
  Transmission Date: 20240715
  Serious: Yes (Hospitalization)
  Sender: FDA-Public Use
  Company Number: PL-ROCHE-3542662

PATIENT
  Age: 51 Year
  Sex: Female

DRUGS (13)
  1. TOCILIZUMAB [Suspect]
     Active Substance: TOCILIZUMAB
     Indication: Rheumatoid arthritis
     Route: 065
  2. METHOTREXATE [Suspect]
     Active Substance: METHOTREXATE
     Indication: Rheumatoid arthritis
     Route: 058
  3. METHYLPREDNISOLONE [Suspect]
     Active Substance: METHYLPREDNISOLONE
     Indication: Rheumatoid arthritis
     Route: 065
  4. CEFTRIAXONE [Concomitant]
     Active Substance: CEFTRIAXONE\CEFTRIAXONE SODIUM
     Indication: Erysipelas
     Route: 042
  5. ENOXAPARIN [Concomitant]
     Active Substance: ENOXAPARIN
     Route: 058
  6. KETOPROFEN [Concomitant]
     Active Substance: KETOPROFEN
  7. FOLICUM [Concomitant]
  8. OMEPRAZOLE [Concomitant]
     Active Substance: OMEPRAZOLE
  9. MONTMORILLONITE [Concomitant]
     Active Substance: MONTMORILLONITE
  10. ALUMINIUM ACETATE [Concomitant]
  11. ICHTHAMMOL [Concomitant]
     Active Substance: ICHTHAMMOL
  12. ALLANTOIN [Concomitant]
     Active Substance: ALLANTOIN
  13. PENICILLIN V [Concomitant]
     Active Substance: PENICILLIN V

REACTIONS (1)
  - Erysipelas [Recovering/Resolving]
